FAERS Safety Report 7349518-2 (Version None)
Quarter: 2011Q1

REPORT INFORMATION
  Report Type: 
  Country: None (occurrence: None)
  Receive Date: 20110304
  Receipt Date: 20100507
  Transmission Date: 20110831
  Serious: Yes (Hospitalization)
  Sender: FDA-Public Use
  Company Number: JP-20100014

PATIENT
  Age: 76 Year
  Sex: Male

DRUGS (5)
  1. EPIRUBICIN HYDROCHLORIDE [Suspect]
     Indication: THERAPEUTIC EMBOLISATION
     Dosage: 30 MG (30 MG, 1 IN 1 TOTAL)
     Route: 013
     Dates: start: 20100407, end: 20100407
  2. IOMERON (IOMERON) [Suspect]
     Indication: THERAPEUTIC EMBOLISATION
     Dosage: 1 ML (1 ML, 1 IN 1 TOTAL)
     Route: 013
     Dates: start: 20100407, end: 20100407
  3. SOSEGON (PENTAZOCINE HYDROCHLORIDE) (PENTAZOCINE HYDROCHLORIDE) [Concomitant]
  4. ATARAX-P (HYDROXYZINE PAMOATE) (HYDROXYZINE PAMOATE) [Concomitant]
  5. LIPIODOL (ETHIODIZED OIL) [Suspect]
     Indication: THERAPEUTIC EMBOLISATION
     Dosage: 6 ML (6 ML, 1 IN 1 TOTAL)
     Route: 013
     Dates: start: 20100407, end: 20100407

REACTIONS (3)
  - MALAISE [None]
  - OFF LABEL USE [None]
  - ANAPHYLACTIC REACTION [None]
